FAERS Safety Report 9474855 (Version 2)
Quarter: 2013Q3

REPORT INFORMATION
  Report Type: Report from Study
  Country: FR (occurrence: FR)
  Receive Date: 20130823
  Receipt Date: 20130916
  Transmission Date: 20140515
  Serious: Yes (Hospitalization)
  Sender: FDA-Public Use
  Company Number: FR-EXELIXIS-XL18413003159

PATIENT
  Age: 75 Year
  Sex: Male
  Weight: 60 kg

DRUGS (9)
  1. XL184 [Suspect]
     Indication: MEDULLARY THYROID CANCER
     Dosage: 175 MG, QD
     Route: 048
     Dates: start: 20100329
  2. XL184 [Suspect]
     Dosage: 125 MG, QD
     Route: 048
     Dates: end: 20130809
  3. TARDYFERON B9 [Concomitant]
  4. SPASFON [Concomitant]
  5. DEBRIDAT [Concomitant]
  6. PLAVIX [Concomitant]
  7. LEVOTHYROX [Concomitant]
  8. TAREG [Concomitant]
  9. LASILIX [Concomitant]

REACTIONS (1)
  - Pyelonephritis [Not Recovered/Not Resolved]
